FAERS Safety Report 25789253 (Version 1)
Quarter: 2025Q3

REPORT INFORMATION
  Report Type: Spontaneous
  Country: CA (occurrence: CA)
  Receive Date: 20250911
  Receipt Date: 20250911
  Transmission Date: 20251021
  Serious: Yes (Other)
  Sender: CELLTRION
  Company Number: CA-CELLTRION INC.-2025CA031958

PATIENT

DRUGS (7)
  1. RITUXIMAB [Suspect]
     Active Substance: RITUXIMAB
     Indication: Multiple sclerosis
     Route: 042
  2. RITUXIMAB [Suspect]
     Active Substance: RITUXIMAB
     Dosage: 1000.0 MILLIGRAM, 1 EVERY 2 WEEKS
     Route: 017
  3. RITUXIMAB [Suspect]
     Active Substance: RITUXIMAB
     Dosage: 1000.0 MILLIGRAM, 1 EVERY 2 WEEKS
     Route: 042
  4. DALFAMPRIDINE [Suspect]
     Active Substance: DALFAMPRIDINE
     Indication: Motor dysfunction
     Route: 065
  5. BACLOFEN [Concomitant]
     Active Substance: BACLOFEN
  6. MODAFINIL [Concomitant]
     Active Substance: MODAFINIL
  7. NITROFURANTOIN [Concomitant]
     Active Substance: NITROFURANTOIN

REACTIONS (10)
  - General physical health deterioration [Unknown]
  - Multiple sclerosis [Unknown]
  - Saccadic eye movement disorder [Unknown]
  - Upper motor neurone lesion [Unknown]
  - Asthenia [Unknown]
  - Fatigue [Unknown]
  - Insomnia [Unknown]
  - Urinary tract infection [Unknown]
  - Sensory loss [Unknown]
  - Intentional product use issue [Unknown]
